FAERS Safety Report 16986613 (Version 1)
Quarter: 2019Q4

REPORT INFORMATION
  Report Type: Spontaneous
  Country: US (occurrence: US)
  Receive Date: 20191101
  Receipt Date: 20191101
  Transmission Date: 20200122
  Serious: No
  Sender: FDA-Public Use
  Company Number: US-JAZZ-2019-US-012423

PATIENT
  Age: 33 Year
  Sex: Male

DRUGS (10)
  1. DRONABINOL. [Concomitant]
     Active Substance: DRONABINOL
     Dosage: 5 MG
  2. SUNOSI [Suspect]
     Active Substance: SOLRIAMFETOL
     Indication: PRODUCT USED FOR UNKNOWN INDICATION
     Dosage: 150 MG, QD
     Route: 048
     Dates: start: 20190904
  3. AMLODIPINE [Suspect]
     Active Substance: AMLODIPINE BESYLATE
     Indication: PRODUCT USED FOR UNKNOWN INDICATION
     Dosage: 10 MG
     Route: 048
  4. BUPROPION XL [Concomitant]
     Active Substance: BUPROPION
     Dosage: 150 MG
  5. SUNOSI [Suspect]
     Active Substance: SOLRIAMFETOL
     Dosage: 75 MG, QD
     Route: 048
     Dates: start: 201908, end: 20190903
  6. BIKTARVY [Concomitant]
     Active Substance: BICTEGRAVIR SODIUM\EMTRICITABINE\TENOFOVIR ALAFENAMIDE FUMARATE
     Dosage: 200 MG
  7. BACLOFEN. [Concomitant]
     Active Substance: BACLOFEN
     Dosage: 10 MG
  8. TOPIRAMATE. [Concomitant]
     Active Substance: TOPIRAMATE
     Dosage: 50 MG
  9. BUPROPION XL [Concomitant]
     Active Substance: BUPROPION
     Dosage: 300 MG
  10. LEVETIRACETAM. [Concomitant]
     Active Substance: LEVETIRACETAM
     Dosage: 5 MG

REACTIONS (2)
  - Peripheral coldness [Unknown]
  - Dizziness [Unknown]

NARRATIVE: CASE EVENT DATE: 20190904
